FAERS Safety Report 11672443 (Version 1)
Quarter: 2015Q4

REPORT INFORMATION
  Report Type: Spontaneous
  Country: US (occurrence: US)
  Receive Date: 20151027
  Receipt Date: 20151027
  Transmission Date: 20160304
  Serious: No
  Sender: FDA-Public Use
  Company Number: US-ELI_LILLY_AND_COMPANY-US201006006874

PATIENT
  Age: 88 Year
  Sex: Female

DRUGS (4)
  1. FORTEO [Suspect]
     Active Substance: TERIPARATIDE
     Indication: OSTEOSIS
     Dosage: 20 UG, UNKNOWN
     Route: 058
     Dates: start: 201004, end: 20100614
  2. CITRICAL [Concomitant]
     Active Substance: CALCIUM CITRATE
     Dosage: UNK, 2/D
  3. VITAMIN D [Concomitant]
     Active Substance: CHOLECALCIFEROL
  4. PRAVASTATIN [Concomitant]
     Active Substance: PRAVASTATIN\PRAVASTATIN SODIUM

REACTIONS (1)
  - Haematemesis [Unknown]

NARRATIVE: CASE EVENT DATE: 20100614
